FAERS Safety Report 11650415 (Version 1)
Quarter: 2015Q4

REPORT INFORMATION
  Report Type: Spontaneous
  Country: SE (occurrence: SE)
  Receive Date: 20151021
  Receipt Date: 20151021
  Transmission Date: 20160304
  Serious: Yes (Hospitalization)
  Sender: FDA-Public Use
  Company Number: SE-TEVA-600773ACC

PATIENT
  Age: 57 Year
  Sex: Female

DRUGS (8)
  1. PARACETAMOL [Suspect]
     Active Substance: ACETAMINOPHEN
     Route: 065
     Dates: start: 20150920, end: 20150920
  2. OMEPRAZOLE. [Suspect]
     Active Substance: OMEPRAZOLE
     Dates: start: 20150920, end: 20150920
  3. NAPROXEN. [Concomitant]
     Active Substance: NAPROXEN
     Dates: start: 20150920, end: 20150920
  4. SOBRIL [Concomitant]
     Active Substance: OXAZEPAM
     Dates: start: 20150920, end: 20150920
  5. OXYCODONE [Concomitant]
     Active Substance: OXYCODONE
     Dates: start: 20150920, end: 20150920
  6. TARGINIQ ER [Suspect]
     Active Substance: NALOXONE HYDROCHLORIDE\OXYCODONE HYDROCHLORIDE
     Dates: start: 20150920, end: 20150920
  7. VALERIANA [Concomitant]
     Active Substance: VALERIAN
     Dates: start: 20150920, end: 20150920
  8. OXASCAND [Suspect]
     Active Substance: OXAZEPAM
     Dates: start: 20150920, end: 20150920

REACTIONS (4)
  - Hypotension [Recovered/Resolved]
  - Electrocardiogram QT prolonged [Recovered/Resolved]
  - Intentional self-injury [Recovered/Resolved]
  - Toxicity to various agents [Recovered/Resolved]

NARRATIVE: CASE EVENT DATE: 20150920
